FAERS Safety Report 5797621-0 (Version None)
Quarter: 2008Q2

REPORT INFORMATION
  Report Type: 
  Country: None (occurrence: None)
  Receive Date: 20080618
  Receipt Date: 20070623
  Transmission Date: 20081010
  Serious: Yes (Other)
  Sender: FDA-Public Use
  Company Number: 200714621US

PATIENT
  Age: 64 Year
  Sex: Female

DRUGS (8)
  1. LANTUS [Suspect]
     Indication: TYPE 2 DIABETES MELLITUS
     Dosage: 30 U QPM
  2. OPTICLIK [Suspect]
     Indication: TYPE 2 DIABETES MELLITUS
  3. HIGH BLOOD PRESSURE MEDICINE [Concomitant]
  4. CHOLESTEROL MEDICINE [Concomitant]
  5. COREG [Concomitant]
  6. COZAAR [Concomitant]
  7. CLOPIDOGREL (PLAVIX /01220701/) [Concomitant]
  8. ASPIRIN [Concomitant]

REACTIONS (1)
  - HYPERGLYCAEMIA [None]
